FAERS Safety Report 17353554 (Version 1)
Quarter: 2020Q1

REPORT INFORMATION
  Report Type: Report from Study
  Country: US (occurrence: US)
  Receive Date: 20200131
  Receipt Date: 20200131
  Transmission Date: 20200409
  Serious: Yes (Other)
  Sender: FDA-Public Use
  Company Number: US-ROCHE-2257149

PATIENT

DRUGS (4)
  1. IRINOTECAN [Suspect]
     Active Substance: IRINOTECAN
     Indication: COLORECTAL CANCER METASTATIC
     Dosage: IN DOSE-ESCALATION PHASE: 120, 150, OR 180 MG/M2/DOSE.
     Route: 065
  2. TRIFLURIDINE. [Suspect]
     Active Substance: TRIFLURIDINE
     Indication: COLORECTAL CANCER METASTATIC
     Dosage: ON DAYS 1-5 OF 14-DAY CYCLE?IN DOSE-ESCALATION PHASE PATIENTS IN SEQUENTIAL DOSE-LEVEL COHORTS RECEI
     Route: 048
  3. TIPIRACIL [Suspect]
     Active Substance: TIPIRACIL
     Indication: COLORECTAL CANCER METASTATIC
     Dosage: ON DAYS 1-5 OF 14 DAY CYCLE?IN DOSE-ESCALATION PHASE PATIENTS IN SEQUENTIAL DOSE-LEVEL COHORTS RECEI
     Route: 048
  4. BEVACIZUMAB. [Suspect]
     Active Substance: BEVACIZUMAB
     Indication: COLORECTAL CANCER METASTATIC
     Route: 065

REACTIONS (12)
  - Leukopenia [Unknown]
  - Fatigue [Unknown]
  - Infusion related reaction [Unknown]
  - Diarrhoea [Unknown]
  - Nausea [Unknown]
  - Back pain [Unknown]
  - Hypokalaemia [Unknown]
  - Anaemia [Unknown]
  - Abdominal pain [Unknown]
  - Neutropenia [Unknown]
  - Vomiting [Unknown]
  - Hypertension [Unknown]
